FAERS Safety Report 23558434 (Version 3)
Quarter: 2025Q1

REPORT INFORMATION
  Report Type: Spontaneous
  Country: FR (occurrence: FR)
  Receive Date: 20240223
  Receipt Date: 20250328
  Transmission Date: 20250409
  Serious: Yes (Hospitalization)
  Sender: BAUSCH AND LOMB
  Company Number: None

PATIENT
  Age: 51 Year
  Sex: Female
  Weight: 108.4 kg

DRUGS (1)
  1. BRODALUMAB [Suspect]
     Active Substance: BRODALUMAB
     Indication: Pustular psoriasis
     Dosage: INJECTION 1: 08/DEC/2023, 2: 15/DEC/2023, 3: 22/DEC/2023, 4: 05/JAN/2024, 5: 19/JAN/2024
     Route: 058
     Dates: start: 20231208, end: 20240119

REACTIONS (1)
  - Drug reaction with eosinophilia and systemic symptoms [Recovered/Resolved]

NARRATIVE: CASE EVENT DATE: 20240115
